FAERS Safety Report 14877602 (Version 3)
Quarter: 2018Q3

REPORT INFORMATION
  Report Type: Spontaneous
  Country: GB (occurrence: GB)
  Receive Date: 20180510
  Receipt Date: 20180810
  Transmission Date: 20181010
  Serious: No
  Sender: FDA-Public Use
  Company Number: GB-BAUSCH-BL-2018-012895

PATIENT
  Age: 85 Year
  Sex: Male

DRUGS (6)
  1. BRIMONIDINE [Suspect]
     Active Substance: BRIMONIDINE TARTRATE
     Indication: AGE-RELATED MACULAR DEGENERATION
     Route: 047
  2. DORZOLAMIDE [Suspect]
     Active Substance: DORZOLAMIDE
     Indication: OPEN ANGLE GLAUCOMA
     Route: 047
  3. LATANOPROST. [Suspect]
     Active Substance: LATANOPROST
     Indication: AGE-RELATED MACULAR DEGENERATION
     Route: 065
  4. BRIMONIDINE [Suspect]
     Active Substance: BRIMONIDINE TARTRATE
     Indication: OPEN ANGLE GLAUCOMA
  5. DORZOLAMIDE [Suspect]
     Active Substance: DORZOLAMIDE
     Indication: AGE-RELATED MACULAR DEGENERATION
  6. LATANOPROST. [Suspect]
     Active Substance: LATANOPROST
     Indication: OPEN ANGLE GLAUCOMA

REACTIONS (3)
  - Drug intolerance [Recovered/Resolved]
  - Vision blurred [Recovered/Resolved]
  - Conjunctival follicles [Recovered/Resolved]
